FAERS Safety Report 8323383-9 (Version None)
Quarter: 2012Q2

REPORT INFORMATION
  Report Type: 
  Country: None (occurrence: None)
  Receive Date: 20120430
  Receipt Date: 20120425
  Transmission Date: 20120825
  Serious: Yes (Death, Other)
  Sender: FDA-Public Use
  Company Number: CA-ABBOTT-12P-028-0922215-00

PATIENT
  Sex: Male
  Weight: 80.812 kg

DRUGS (1)
  1. LUPRON DEPOT [Suspect]
     Indication: PROSTATE CANCER
     Dates: start: 20111217, end: 20111217

REACTIONS (2)
  - DEATH [None]
  - METASTATIC SQUAMOUS CELL CARCINOMA [None]
